FAERS Safety Report 5792674-8 (Version None)
Quarter: 2008Q2

REPORT INFORMATION
  Report Type: 
  Country: None (occurrence: None)
  Receive Date: 20080624
  Receipt Date: 20080613
  Transmission Date: 20081010
  Serious: Yes (Hospitalization, Other)
  Sender: FDA-Public Use
  Company Number: 2008SP006742

PATIENT
  Age: 42 Year
  Sex: Male
  Weight: 135.1719 kg

DRUGS (3)
  1. PEG-INTRON [Suspect]
     Indication: HEPATITIS C
     Dosage: 150 MCG QW; SC
     Route: 058
     Dates: start: 20080316
  2. RIBASPHERE [Suspect]
     Indication: HEPATITIS C
     Dosage: 1400 MG; QD; PO
     Route: 048
     Dates: start: 20080316
  3. NORVASC [Suspect]

REACTIONS (11)
  - ANXIETY [None]
  - BLOOD CALCIUM DECREASED [None]
  - BLOOD POTASSIUM DECREASED [None]
  - BLOOD PRESSURE INCREASED [None]
  - CARDIOMEGALY [None]
  - CHEST DISCOMFORT [None]
  - CHEST PAIN [None]
  - DYSPNOEA [None]
  - HEART RATE INCREASED [None]
  - INFLUENZA LIKE ILLNESS [None]
  - INSOMNIA [None]
